FAERS Safety Report 21194101 (Version 1)
Quarter: 2022Q3

REPORT INFORMATION
  Report Type: Spontaneous
  Country: US (occurrence: US)
  Receive Date: 20220810
  Receipt Date: 20220810
  Transmission Date: 20221026
  Serious: No
  Sender: FDA-Public Use
  Company Number: US-BoehringerIngelheim-2022-BI-186272

PATIENT
  Age: 75 Year
  Sex: Female

DRUGS (3)
  1. OFEV [Suspect]
     Active Substance: NINTEDANIB
     Indication: Idiopathic pulmonary fibrosis
     Dates: start: 202106
  2. OFEV [Suspect]
     Active Substance: NINTEDANIB
     Dates: start: 202109
  3. OFEV [Suspect]
     Active Substance: NINTEDANIB
     Dosage: 100MG IN THE MORNING AND 150MG IN THE EVENING

REACTIONS (2)
  - Abdominal discomfort [Unknown]
  - Wrong dose [Unknown]

NARRATIVE: CASE EVENT DATE: 20210901
